FAERS Safety Report 4594296-3 (Version None)
Quarter: 2005Q1

REPORT INFORMATION
  Report Type: 
  Country: None (occurrence: None)
  Receive Date: 20050301
  Receipt Date: 20040923
  Transmission Date: 20050727
  Serious: No
  Sender: FDA-Public Use
  Company Number: US-GLAXOSMITHKLINE-A0527099A

PATIENT
  Age: 34 Year
  Sex: Female

DRUGS (3)
  1. VALTREX [Suspect]
     Route: 048
  2. LYSINE [Concomitant]
  3. ZINC [Concomitant]

REACTIONS (1)
  - RASH VESICULAR [None]
